FAERS Safety Report 6277909-X (Version None)
Quarter: 2009Q3

REPORT INFORMATION
  Report Type: 
  Country: None (occurrence: None)
  Receive Date: 20090722
  Receipt Date: 20090715
  Transmission Date: 20100115
  Serious: Yes (Hospitalization)
  Sender: FDA-Public Use
  Company Number: FR-BAXTER-2009BH011659

PATIENT
  Age: 62 Year
  Sex: Male

DRUGS (17)
  1. HOLOXAN BAXTER [Suspect]
     Indication: LYMPHOMA
     Route: 042
     Dates: start: 20090505, end: 20090505
  2. UROMITEXAN BAXTER [Suspect]
     Indication: LYMPHOMA
     Route: 042
     Dates: start: 20090505, end: 20090505
  3. UROMITEXAN BAXTER [Suspect]
     Route: 048
     Dates: start: 20090505, end: 20090505
  4. TAVANIC [Suspect]
     Indication: LYMPHOMA
     Route: 048
     Dates: start: 20090507, end: 20090514
  5. ETOPOPHOS PRESERVATIVE FREE [Suspect]
     Indication: LYMPHOMA
     Route: 065
     Dates: start: 20090505
  6. DOXORUBICIN HCL [Suspect]
     Indication: LYMPHOMA
     Route: 065
     Dates: start: 20090505
  7. ONDANSETRON HCL [Suspect]
     Indication: LYMPHOMA
     Route: 065
     Dates: start: 20090505
  8. ALLOPURINOL [Suspect]
     Indication: DRUG USE FOR UNKNOWN INDICATION
     Route: 065
     Dates: start: 20090505
  9. GEMZAR [Suspect]
     Indication: LYMPHOMA
     Route: 065
     Dates: start: 20090305
  10. ELOXATIN [Suspect]
     Indication: LYMPHOMA
     Route: 065
     Dates: start: 20090305
  11. SOLUPRED [Concomitant]
     Indication: DRUG USE FOR UNKNOWN INDICATION
     Route: 048
     Dates: start: 20090509
  12. TIOTROPIUM [Concomitant]
     Indication: DRUG USE FOR UNKNOWN INDICATION
     Route: 048
  13. FLUTICASONE W/SALMETEROL [Concomitant]
     Indication: DRUG USE FOR UNKNOWN INDICATION
     Route: 048
  14. METFORMINE 1000 [Concomitant]
     Indication: DRUG USE FOR UNKNOWN INDICATION
     Route: 048
  15. FUROSEMIDE [Concomitant]
     Indication: DRUG USE FOR UNKNOWN INDICATION
     Route: 048
  16. BACTRIM DS [Concomitant]
     Indication: DRUG USE FOR UNKNOWN INDICATION
     Route: 048
  17. FOLINIC ACID [Concomitant]
     Indication: DRUG USE FOR UNKNOWN INDICATION
     Route: 048

REACTIONS (1)
  - CONFUSIONAL STATE [None]
